FAERS Safety Report 5076367-0 (Version None)
Quarter: 2006Q3

REPORT INFORMATION
  Report Type: 
  Country: None (occurrence: None)
  Receive Date: 20060807
  Receipt Date: 20060725
  Transmission Date: 20061208
  Serious: Yes (Death, Congenital Anomaly, Other)
  Sender: FDA-Public Use
  Company Number: 2002099730FR

PATIENT
  Sex: Female
  Weight: 2.1 kg

DRUGS (7)
  1. XANAX [Suspect]
     Indication: DRUG USE FOR UNKNOWN INDICATION
     Dosage: 0.5 MG, ORAL
     Route: 048
     Dates: end: 19960131
  2. ASPEGIC 1000 [Suspect]
     Indication: DRUG USE FOR UNKNOWN INDICATION
     Dosage: ORAL
     Route: 048
  3. TORENTAL (PENTOXIFYLLINE) [Suspect]
     Indication: DRUG USE FOR UNKNOWN INDICATION
     Dosage: ORAL
     Route: 048
     Dates: end: 19960223
  4. ISOPTIN [Suspect]
     Indication: DRUG USE FOR UNKNOWN INDICATION
     Dosage: 240 MG, ORAL
     Route: 048
  5. PROZAC [Suspect]
     Indication: DRUG USE FOR UNKNOWN INDICATION
     Dosage: 20 MG
     Dates: end: 19960131
  6. PERINDOPRIL ERBUMINE [Suspect]
     Indication: DRUG USE FOR UNKNOWN INDICATION
     Dosage: 4 MG, ORAL
     Route: 048
  7. FENOFIBRATE [Concomitant]

REACTIONS (26)
  - ANAEMIA [None]
  - APGAR SCORE LOW [None]
  - BLOOD CULTURE POSITIVE [None]
  - BLOOD PRESSURE DECREASED [None]
  - BRADYCARDIA NEONATAL [None]
  - CAESAREAN SECTION [None]
  - CARDIAC MURMUR [None]
  - CONGENITAL TRICUSPID VALVE ATRESIA [None]
  - CORYNEBACTERIUM INFECTION [None]
  - CYANOSIS NEONATAL [None]
  - DEATH NEONATAL [None]
  - DIABETES COMPLICATING PREGNANCY [None]
  - DRUG EXPOSURE DURING PREGNANCY [None]
  - GLYCOSYLATED HAEMOGLOBIN INCREASED [None]
  - HEART DISEASE CONGENITAL [None]
  - HYPERTHERMIA [None]
  - MALAISE [None]
  - METABOLIC ACIDOSIS [None]
  - OEDEMA NEONATAL [None]
  - PALLOR [None]
  - PERSISTENT FOETAL CIRCULATION [None]
  - PRE-ECLAMPSIA [None]
  - PREMATURE BABY [None]
  - STAPHYLOCOCCAL INFECTION [None]
  - UNEVALUABLE EVENT [None]
  - VENTRICULAR FIBRILLATION [None]
